FAERS Safety Report 5028915-4 (Version None)
Quarter: 2006Q2

REPORT INFORMATION
  Report Type: 
  Country: None (occurrence: None)
  Receive Date: 20060619
  Receipt Date: 20060605
  Transmission Date: 20061013
  Serious: Yes (Hospitalization)
  Sender: FDA-Public Use
  Company Number: JP-JPN-A200601865

PATIENT
  Age: 95 Year
  Sex: Female
  Weight: 35 kg

DRUGS (8)
  1. MODACIN [Suspect]
     Indication: PNEUMONIA
     Dosage: 1G TWICE PER DAY
     Route: 042
     Dates: start: 20060327, end: 20060408
  2. MUCOSTA [Concomitant]
     Indication: GASTRITIS
     Dosage: 3U PER DAY
     Route: 048
  3. FOIPAN [Concomitant]
     Dosage: 3U PER DAY
     Route: 048
  4. URSO [Concomitant]
     Indication: LIVER DISORDER
     Dosage: 300MG PER DAY
     Route: 048
  5. FERROMIA [Concomitant]
     Dosage: 2U PER DAY
     Route: 048
  6. TAKEPRON [Concomitant]
     Dosage: 15MG PER DAY
     Route: 048
  7. BIO THREE [Concomitant]
     Indication: ENTEROCOLITIS
     Dosage: 3U PER DAY
     Route: 048
  8. PLATELETS [Concomitant]
     Route: 065

REACTIONS (2)
  - CACHEXIA [None]
  - PLATELET COUNT DECREASED [None]
